FAERS Safety Report 5215610-1 (Version None)
Quarter: 2007Q1

REPORT INFORMATION
  Report Type: 
  Country: None (occurrence: None)
  Receive Date: 20070123
  Receipt Date: 20070112
  Transmission Date: 20070707
  Serious: Yes (Other)
  Sender: FDA-Public Use
  Company Number: PHMT2006CA02249

PATIENT
  Sex: Male

DRUGS (5)
  1. EXELON [Suspect]
     Indication: DEMENTIA ALZHEIMER'S TYPE
     Dosage: 3 MG, BID
     Route: 048
     Dates: start: 20040203
  2. CITALOPRAM [Concomitant]
     Dosage: 20MG QD
  3. PROLOPA [Concomitant]
     Dosage: 12.5 TID
  4. SIMVASTATIN [Concomitant]
     Dosage: 40MG QD
  5. ALTACE [Concomitant]
     Dosage: 10MG QD
     Route: 048

REACTIONS (2)
  - DYSPHAGIA [None]
  - PARKINSON'S DISEASE [None]
